FAERS Safety Report 15434061 (Version 1)
Quarter: 2018Q3

REPORT INFORMATION
  Report Type: Spontaneous
  Country: CL (occurrence: CL)
  Receive Date: 20180927
  Receipt Date: 20180927
  Transmission Date: 20181010
  Serious: Yes (Death, Hospitalization, Other)
  Sender: FDA-Public Use
  Company Number: CL-GLAXOSMITHKLINE-CL2018175442

PATIENT
  Age: 62 Year
  Sex: Female

DRUGS (2)
  1. CHLORPROMAZINE. [Concomitant]
     Active Substance: CHLORPROMAZINE
     Indication: PRODUCT USED FOR UNKNOWN INDICATION
     Dosage: 1.5 G, UNK
     Route: 048
  2. BUPROPION. [Suspect]
     Active Substance: BUPROPION
     Indication: PRODUCT USED FOR UNKNOWN INDICATION
     Dosage: 9.5 G, UNK
     Route: 048
     Dates: start: 201702

REACTIONS (14)
  - Gaze palsy [Unknown]
  - Blood lactic acid increased [Unknown]
  - Altered state of consciousness [Unknown]
  - Hypotension [Unknown]
  - Myoclonus [Unknown]
  - Seizure [Unknown]
  - Hyperreflexia [Unknown]
  - Toxicity to various agents [Fatal]
  - Cardiac arrest [Unknown]
  - Hypoxia [Unknown]
  - Hyperintensity in brain deep nuclei [Unknown]
  - Coma [Fatal]
  - Electrocardiogram QT prolonged [Unknown]
  - Tachycardia [Unknown]

NARRATIVE: CASE EVENT DATE: 2017
